FAERS Safety Report 6543774-6 (Version None)
Quarter: 2010Q1

REPORT INFORMATION
  Report Type: 
  Country: None (occurrence: None)
  Receive Date: 20100120
  Receipt Date: 20090108
  Transmission Date: 20100710
  Serious: Yes (Disabling)
  Sender: FDA-Public Use
  Company Number: US-BRISTOL-MYERS SQUIBB COMPANY-14444145

PATIENT
  Age: 74 Year
  Sex: Female
  Weight: 100 kg

DRUGS (8)
  1. CISPLATIN [Suspect]
     Indication: OVARIAN CANCER
     Dosage: REDUCED TO 50MG/M2 IN AUG-2008, STOPPED IN DEC-2008.
     Route: 042
     Dates: start: 20080701
  2. LYRICA [Concomitant]
  3. LIPITOR [Concomitant]
  4. OMEPRAZOLE [Concomitant]
  5. HYDROCHLOROTHIAZIDE [Concomitant]
  6. VITAMIN B1 TAB [Concomitant]
  7. VITAMIN B-12 [Concomitant]
  8. FOLIC ACID [Concomitant]

REACTIONS (4)
  - ABASIA [None]
  - MUSCULAR WEAKNESS [None]
  - PARAESTHESIA [None]
  - SENSORY LOSS [None]
